FAERS Safety Report 13227399 (Version 4)
Quarter: 2017Q2

REPORT INFORMATION
  Report Type: Report from Study
  Country: US (occurrence: US)
  Receive Date: 20170213
  Receipt Date: 20170504
  Transmission Date: 20170830
  Serious: Yes (Hospitalization)
  Sender: FDA-Public Use
  Company Number: US-EISAI MEDICAL RESEARCH-EC-2017-024852

PATIENT
  Age: 62 Year
  Sex: Female
  Weight: 55.34 kg

DRUGS (23)
  1. HYDROMORPHONE [Concomitant]
     Active Substance: HYDROMORPHONE
  2. MORPHINE SULFATE. [Concomitant]
     Active Substance: MORPHINE SULFATE
  3. LORATADINE. [Concomitant]
     Active Substance: LORATADINE
  4. BUTALBITAL-ACETAMINOPHEN-CAFFEINE [Concomitant]
  5. LEVOTHYROXINE. [Concomitant]
     Active Substance: LEVOTHYROXINE
  6. TRAMADOL. [Concomitant]
     Active Substance: TRAMADOL
  7. DULOXETINE. [Concomitant]
     Active Substance: DULOXETINE
  8. SPIRONOLACTONE. [Concomitant]
     Active Substance: SPIRONOLACTONE
  9. CARAFATE [Concomitant]
     Active Substance: SUCRALFATE
  10. LENVATINIB [Suspect]
     Active Substance: LENVATINIB
     Indication: CLEAR CELL SARCOMA OF SOFT TISSUE
     Route: 048
     Dates: start: 20170114, end: 20170209
  11. INVOKANA [Concomitant]
     Active Substance: CANAGLIFLOZIN
  12. GLIPIZIDE. [Concomitant]
     Active Substance: GLIPIZIDE
  13. ERIBULIN [Suspect]
     Active Substance: ERIBULIN
     Indication: CLEAR CELL SARCOMA OF SOFT TISSUE
     Route: 041
     Dates: start: 20170113, end: 20170209
  14. ALPRAZOLAM. [Concomitant]
     Active Substance: ALPRAZOLAM
  15. IBUPROFEN. [Concomitant]
     Active Substance: IBUPROFEN
  16. LISINOPRIL. [Concomitant]
     Active Substance: LISINOPRIL
  17. METOPROLOL. [Concomitant]
     Active Substance: METOPROLOL
  18. PANTOPRAZOLE [Concomitant]
     Active Substance: PANTOPRAZOLE
  19. ONDANSETRON [Concomitant]
     Active Substance: ONDANSETRON
  20. FENOFIBRATE. [Concomitant]
     Active Substance: FENOFIBRATE
  21. TRADJENTA [Concomitant]
     Active Substance: LINAGLIPTIN
  22. DOXEPIN [Concomitant]
     Active Substance: DOXEPIN
  23. LYRICA [Concomitant]
     Active Substance: PREGABALIN

REACTIONS (3)
  - Abdominal pain [Unknown]
  - Deep vein thrombosis [Not Recovered/Not Resolved]
  - Pain in extremity [Unknown]

NARRATIVE: CASE EVENT DATE: 20170121
